FAERS Safety Report 5515611-X (Version None)
Quarter: 2007Q4

REPORT INFORMATION
  Report Type: 
  Country: None (occurrence: None)
  Receive Date: 20071113
  Receipt Date: 20070702
  Transmission Date: 20080405
  Serious: No
  Sender: FDA-Public Use
  Company Number: A0661307A

PATIENT
  Age: 62 Year
  Sex: Male

DRUGS (6)
  1. COREG [Suspect]
     Indication: LEFT VENTRICULAR DYSFUNCTION
     Dosage: 3.125MG TWICE PER DAY
     Route: 048
     Dates: start: 20070516, end: 20070628
  2. ALTACE [Concomitant]
  3. ZOCOR [Concomitant]
  4. COUMADIN [Concomitant]
  5. ASPIRIN [Concomitant]
  6. LOVENOX [Concomitant]

REACTIONS (2)
  - DIZZINESS [None]
  - HYPOTENSION [None]
